FAERS Safety Report 5258375-X (Version None)
Quarter: 2007Q1

REPORT INFORMATION
  Report Type: 
  Country: None (occurrence: None)
  Receive Date: 20061117
  Receipt Date: 20060303
  Transmission Date: 20070707
  Serious: Yes (Hospitalization)
  Sender: FDA-Public Use
  Company Number: US-JNJFOC-20060301276

PATIENT
  Age: 24 Year
  Sex: Female

DRUGS (4)
  1. LEVAQUIN [Suspect]
     Indication: PROPHYLAXIS
     Dosage: 500 MG, 1 IN 1 DAY
     Dates: start: 20060214, end: 20060218
  2. ASACOL [Concomitant]
  3. FLAGYL [Concomitant]
  4. PREDNISONE TAB [Concomitant]

REACTIONS (1)
  - STEVENS-JOHNSON SYNDROME [None]
